FAERS Safety Report 9825574 (Version 3)
Quarter: 2014Q1

REPORT INFORMATION
  Report Type: Spontaneous
  Country: US (occurrence: US)
  Receive Date: 20140117
  Receipt Date: 20140211
  Transmission Date: 20141002
  Serious: Yes (Hospitalization, Other)
  Sender: FDA-Public Use
  Company Number: US-JNJFOC-20140104745

PATIENT
  Age: 54 Year
  Sex: Female
  Weight: 170.1 kg

DRUGS (11)
  1. XARELTO [Suspect]
     Indication: CEREBROVASCULAR ACCIDENT PROPHYLAXIS
     Route: 048
     Dates: start: 20131227, end: 20140113
  2. XARELTO [Suspect]
     Indication: CEREBROVASCULAR ACCIDENT PROPHYLAXIS
     Route: 048
     Dates: start: 201205, end: 20131223
  3. XARELTO [Suspect]
     Indication: ATRIAL FIBRILLATION
     Route: 048
     Dates: start: 201205, end: 20131223
  4. XARELTO [Suspect]
     Indication: ATRIAL FIBRILLATION
     Route: 048
     Dates: start: 20131227, end: 20140113
  5. LEVOXYL [Concomitant]
     Route: 065
     Dates: start: 1995
  6. REQUIP [Concomitant]
     Route: 065
     Dates: start: 2010
  7. TOPROL [Concomitant]
     Route: 065
     Dates: start: 2012
  8. SPIRONOLACTONE [Concomitant]
     Route: 065
     Dates: start: 1995
  9. LOSARTAN [Concomitant]
     Route: 065
     Dates: start: 2009
  10. NORVASC [Concomitant]
     Route: 065
     Dates: start: 2000
  11. VITAMIN D [Concomitant]
     Route: 065
     Dates: start: 2010

REACTIONS (2)
  - Vaginal haemorrhage [Recovered/Resolved]
  - Inappropriate schedule of drug administration [Unknown]
